FAERS Safety Report 7624932-6 (Version None)
Quarter: 2011Q3

REPORT INFORMATION
  Report Type: 
  Country: None (occurrence: None)
  Receive Date: 20110720
  Receipt Date: 20110718
  Transmission Date: 20111222
  Serious: Yes (Hospitalization, Other)
  Sender: FDA-Public Use
  Company Number: US-RB-030269-11

PATIENT
  Age: 57 Year
  Sex: Male

DRUGS (2)
  1. SUBOXONE [Suspect]
     Indication: PRODUCT USED FOR UNKNOWN INDICATION
     Dosage: DOSING INFORMATION UNKNOWN/HAS BEEN ON AND OFF SUBOXONE SINCE ??-???-2003
     Route: 065
     Dates: start: 20030101
  2. SUBOXONE [Suspect]
     Indication: PRODUCT USED FOR UNKNOWN INDICATION
     Dosage: SUBLINGUAL FILM; DOSING INFORMATION UNKNOWN
     Route: 065

REACTIONS (13)
  - LIBIDO DECREASED [None]
  - SUICIDAL IDEATION [None]
  - VISION BLURRED [None]
  - HYPOACUSIS [None]
  - CATARACT [None]
  - POST PROCEDURAL COMPLICATION [None]
  - URINARY TRACT DISORDER [None]
  - RETROGRADE EJACULATION [None]
  - HYPERTONIC BLADDER [None]
  - MALAISE [None]
  - GALLBLADDER DISORDER [None]
  - TOOTH DISORDER [None]
  - ABDOMINAL PAIN UPPER [None]
